FAERS Safety Report 6248873-4 (Version None)
Quarter: 2009Q2

REPORT INFORMATION
  Report Type: 
  Country: None (occurrence: None)
  Receive Date: 20090629
  Receipt Date: 20090619
  Transmission Date: 20091009
  Serious: Yes (Hospitalization)
  Sender: FDA-Public Use
  Company Number: PHHO2005IT03800

PATIENT
  Sex: Male
  Weight: 72 kg

DRUGS (1)
  1. NEORAL [Suspect]
     Indication: LIVER TRANSPLANT
     Dosage: 150 MG/DAY
     Route: 048
     Dates: start: 20050118, end: 20050304

REACTIONS (2)
  - BONE MARROW FAILURE [None]
  - NORMOCHROMIC NORMOCYTIC ANAEMIA [None]
